FAERS Safety Report 20064355 (Version 1)
Quarter: 2021Q4

REPORT INFORMATION
  Report Type: Spontaneous
  Country: US (occurrence: US)
  Receive Date: 20211112
  Receipt Date: 20211112
  Transmission Date: 20220303
  Serious: No
  Sender: FDA-Public Use
  Company Number: US-Flexion Therapeutics, Inc.-2021FLS000079

PATIENT
  Age: 61 Year
  Sex: Female

DRUGS (2)
  1. ZILRETTA [Suspect]
     Active Substance: TRIAMCINOLONE ACETONIDE
     Indication: Osteoarthritis
     Route: 014
     Dates: start: 20210625, end: 20210625
  2. ZILRETTA [Suspect]
     Active Substance: TRIAMCINOLONE ACETONIDE
     Route: 014
     Dates: start: 202105, end: 202105

REACTIONS (1)
  - Joint effusion [Unknown]

NARRATIVE: CASE EVENT DATE: 20210628
